FAERS Safety Report 14766170 (Version 2)
Quarter: 2018Q2

REPORT INFORMATION
  Report Type: Spontaneous
  Country: US (occurrence: US)
  Receive Date: 20180416
  Receipt Date: 20180416
  Transmission Date: 20180711
  Serious: No
  Sender: FDA-Public Use
  Company Number: US-ASTELLAS-2017US024018

PATIENT
  Sex: Female

DRUGS (10)
  1. NOXAFIL [Suspect]
     Active Substance: POSACONAZOLE
     Indication: FUNGAL INFECTION
     Route: 065
     Dates: start: 20170509
  2. PREDNISONE. [Concomitant]
     Active Substance: PREDNISONE
     Indication: PRODUCT USED FOR UNKNOWN INDICATION
     Dosage: UNK UNK, UNKNOWN FREQ.
     Route: 065
  3. TACROLIMUS. [Suspect]
     Active Substance: TACROLIMUS
     Dosage: 0.5 MG, ONCE DAILY
     Route: 065
  4. PROGRAF [Suspect]
     Active Substance: TACROLIMUS\TACROLIMUS ANHYDROUS
     Dosage: 2 MG (1.5 MG IN THE MORNING AND 0.5 MG IN THE EVENING), DAILY
     Route: 065
  5. TACROLIMUS. [Suspect]
     Active Substance: TACROLIMUS
     Dosage: 2 MG (1.5 MG IN THE MORNING AND 0.5 MG IN THE EVENING), DAILY
     Route: 065
  6. PROGRAF [Suspect]
     Active Substance: TACROLIMUS\TACROLIMUS ANHYDROUS
     Indication: PROPHYLAXIS AGAINST TRANSPLANT REJECTION
     Dosage: 2.5 MG (1.5 MG IN THE MORNING AND 1 MG IN THE EVENING) DAILY
     Route: 065
     Dates: start: 200712
  7. PROGRAF [Suspect]
     Active Substance: TACROLIMUS\TACROLIMUS ANHYDROUS
     Dosage: 0.5 MG, ONCE DAILY
     Route: 065
  8. NOXAFIL [Suspect]
     Active Substance: POSACONAZOLE
     Route: 065
  9. TACROLIMUS. [Suspect]
     Active Substance: TACROLIMUS
     Indication: PROPHYLAXIS AGAINST TRANSPLANT REJECTION
     Dosage: 2.5 MG (1.5 MG IN THE MORNING AND 1 MG IN THE EVENING), DAILY
     Route: 065
  10. IMURAN [Concomitant]
     Active Substance: AZATHIOPRINE
     Indication: PRODUCT USED FOR UNKNOWN INDICATION
     Dosage: UNK UNK, UNKNOWN FREQ.
     Route: 065

REACTIONS (19)
  - Chromaturia [Unknown]
  - Skin exfoliation [Unknown]
  - Off label use [Unknown]
  - Feeding disorder [Unknown]
  - Immunosuppressant drug level increased [Unknown]
  - Loss of personal independence in daily activities [Unknown]
  - Fatigue [Unknown]
  - Feeling abnormal [Unknown]
  - Oliguria [Unknown]
  - Dyspnoea [Unknown]
  - Fungal infection [Unknown]
  - Forced expiratory volume decreased [Unknown]
  - Asthenia [Unknown]
  - Tremor [Unknown]
  - Faeces discoloured [Unknown]
  - Nausea [Unknown]
  - Alopecia [Unknown]
  - Headache [Unknown]
  - Stomatitis [Unknown]

NARRATIVE: CASE EVENT DATE: 201701
